FAERS Safety Report 13238020 (Version 2)
Quarter: 2017Q1

REPORT INFORMATION
  Report Type: Report from Study
  Country: None (occurrence: US)
  Receive Date: 20170216
  Receipt Date: 20170318
  Transmission Date: 20170428
  Serious: Yes (Hospitalization)
  Sender: FDA-Public Use
  Company Number: US-ABBVIE-17K-163-1868829-00

PATIENT
  Sex: Female

DRUGS (4)
  1. HUMIRA [Suspect]
     Active Substance: ADALIMUMAB
     Indication: CROHN^S DISEASE
     Dosage: DAY1
     Route: 058
     Dates: start: 2012, end: 2012
  2. HUMIRA [Suspect]
     Active Substance: ADALIMUMAB
     Route: 058
     Dates: end: 201611
  3. HUMIRA [Suspect]
     Active Substance: ADALIMUMAB
     Dosage: DAY15
     Route: 058
  4. HUMIRA [Suspect]
     Active Substance: ADALIMUMAB
     Route: 058
     Dates: start: 201702

REACTIONS (10)
  - Injection site swelling [Not Recovered/Not Resolved]
  - Injection site pain [Unknown]
  - Injection site erythema [Not Recovered/Not Resolved]
  - Anal fistula [Recovering/Resolving]
  - Perirectal abscess [Unknown]
  - Decreased appetite [Unknown]
  - Drug administered at inappropriate site [Unknown]
  - Injection site pruritus [Not Recovered/Not Resolved]
  - Malaise [Unknown]
  - Constipation [Unknown]
